FAERS Safety Report 8495065-4 (Version None)
Quarter: 2012Q3

REPORT INFORMATION
  Report Type: 
  Country: None (occurrence: None)
  Receive Date: 20120709
  Receipt Date: 20120628
  Transmission Date: 20120928
  Serious: Yes (Other)
  Sender: FDA-Public Use
  Company Number: US-JNJFOC-20120700182

PATIENT
  Sex: Female
  Weight: 56.7 kg

DRUGS (8)
  1. TOPIRAMATE [Suspect]
     Indication: MIGRAINE
     Route: 048
  2. TOPIRAMATE [Suspect]
     Route: 048
  3. TOPAMAX [Suspect]
     Route: 048
  4. LORTAB [Concomitant]
     Indication: PAIN
     Route: 048
     Dates: start: 20110101
  5. TOPAMAX [Suspect]
     Indication: MIGRAINE
     Route: 048
  6. TOPAMAX [Suspect]
     Route: 048
     Dates: start: 20110401
  7. TOPAMAX [Suspect]
     Route: 048
  8. TOPAMAX [Suspect]
     Route: 048
     Dates: start: 20120501

REACTIONS (10)
  - MALIGNANT MELANOMA [None]
  - PARAESTHESIA [None]
  - PRODUCT QUALITY ISSUE [None]
  - NAUSEA [None]
  - HIATUS HERNIA [None]
  - VOMITING [None]
  - BLOOD BICARBONATE ABNORMAL [None]
  - ABDOMINAL PAIN UPPER [None]
  - FEELING ABNORMAL [None]
  - MIGRAINE [None]
